FAERS Safety Report 15850957 (Version 2)
Quarter: 2019Q1

REPORT INFORMATION
  Report Type: Report from Study
  Country: None (occurrence: CA)
  Receive Date: 20190121
  Receipt Date: 20190227
  Transmission Date: 20190417
  Serious: Yes (Other)
  Sender: FDA-Public Use
  Company Number: CA-ABBVIE-19K-028-2628422-00

PATIENT
  Sex: Male

DRUGS (1)
  1. HUMIRA [Suspect]
     Active Substance: ADALIMUMAB
     Indication: ANKYLOSING SPONDYLITIS
     Route: 058
     Dates: start: 20151009, end: 2018

REACTIONS (3)
  - Ankylosing spondylitis [Unknown]
  - Surgery [Unknown]
  - Sinus congestion [Unknown]

NARRATIVE: CASE EVENT DATE: 2018
